FAERS Safety Report 15628469 (Version 1)
Quarter: 2018Q4

REPORT INFORMATION
  Report Type: Report from Study
  Country: DE (occurrence: DE)
  Receive Date: 20181116
  Receipt Date: 20181116
  Transmission Date: 20190205
  Serious: Yes (Hospitalization)
  Sender: FDA-Public Use
  Company Number: DE-SHIRE-DE201844235

PATIENT

DRUGS (1)
  1. IDURSULFASE [Suspect]
     Active Substance: IDURSULFASE
     Indication: MUCOPOLYSACCHARIDOSIS II
     Dosage: 0.50 MG/KG, 1X/WEEK
     Route: 065
     Dates: start: 20061013

REACTIONS (3)
  - Surgery [Unknown]
  - Inguinal hernia [Recovered/Resolved]
  - Hydrocele [Recovered/Resolved]

NARRATIVE: CASE EVENT DATE: 201007
